FAERS Safety Report 8825978 (Version 2)
Quarter: 2015Q1

REPORT INFORMATION
  Report Type: Report from Study
  Country: US (occurrence: US)
  Receive Date: 20121005
  Receipt Date: 20150130
  Transmission Date: 20150721
  Serious: Yes (Death)
  Sender: FDA-Public Use
  Company Number: US-ROCHE-1133645

PATIENT
  Sex: Male

DRUGS (2)
  1. RITUXAN [Suspect]
     Active Substance: RITUXIMAB
     Dosage: UNKNOWN DOSES ON 11/MAR/1998, 18/MAR/1998, 25/MAR/1998, 03/APR/1998, 10/APR/1998, 24/APR/1998 AND 01
     Route: 042
     Dates: start: 19980306
  2. RITUXAN [Suspect]
     Active Substance: RITUXIMAB
     Indication: LYMPHOMA
     Route: 042
     Dates: start: 19980226

REACTIONS (3)
  - Death [Fatal]
  - Off label use [Unknown]
  - Malaise [Unknown]
